FAERS Safety Report 8176771-8 (Version None)
Quarter: 2012Q1

REPORT INFORMATION
  Report Type: 
  Country: None (occurrence: None)
  Receive Date: 20120301
  Receipt Date: 20120226
  Transmission Date: 20120608
  Serious: No
  Sender: FDA-Public Use
  Company Number: US-PFIZER INC-2012033997

PATIENT
  Sex: Female
  Weight: 56.7 kg

DRUGS (4)
  1. PREMARIN [Suspect]
     Indication: VULVOVAGINAL DISCOMFORT
     Dosage: WEEKLY
     Dates: end: 20120101
  2. ALENDRONATE SODIUM [Concomitant]
     Indication: BONE LOSS
     Dosage: 70 MG, WEEKLY
  3. PREMARIN [Suspect]
     Indication: VULVOVAGINAL DRYNESS
     Dosage: UNK, 2X/WEEK
     Route: 067
     Dates: start: 20120101
  4. MELOXICAM [Concomitant]
     Indication: PAIN
     Dosage: 15 MG, DAILY

REACTIONS (2)
  - VULVOVAGINAL PRURITUS [None]
  - DRUG INEFFECTIVE [None]
